FAERS Safety Report 16384663 (Version 5)
Quarter: 2022Q1

REPORT INFORMATION
  Report Type: Report from Study
  Country: CA (occurrence: CA)
  Receive Date: 20190603
  Receipt Date: 20220204
  Transmission Date: 20220423
  Serious: Yes (Other)
  Sender: FDA-Public Use
  Company Number: CA-JNJFOC-20190541810

PATIENT
  Age: 73 Year
  Sex: Male
  Weight: 69 kg

DRUGS (3)
  1. REMICADE [Suspect]
     Active Substance: INFLIXIMAB
     Indication: Colitis ulcerative
     Route: 042
     Dates: start: 20181206
  2. REMICADE [Suspect]
     Active Substance: INFLIXIMAB
     Dosage: REMICADE INDUCTION WEEK 0
     Route: 042
  3. REMICADE [Suspect]
     Active Substance: INFLIXIMAB
     Route: 042

REACTIONS (5)
  - Basal cell carcinoma [Unknown]
  - Colitis ulcerative [Unknown]
  - Mental disorder [Unknown]
  - Off label use [Unknown]
  - Product use issue [Unknown]
